FAERS Safety Report 8132651-5 (Version None)
Quarter: 2012Q1

REPORT INFORMATION
  Report Type: 
  Country: None (occurrence: None)
  Receive Date: 20120213
  Receipt Date: 20120118
  Transmission Date: 20120608
  Serious: Yes (Other)
  Sender: FDA-Public Use
  Company Number: JP-GLAXOSMITHKLINE-B0776532A

PATIENT
  Sex: Female

DRUGS (6)
  1. LAMICTAL [Suspect]
     Dosage: 80MG PER DAY
     Route: 048
     Dates: start: 20120111
  2. CLONAZEPAM [Concomitant]
     Indication: EPILEPSY
     Dosage: 5.01MG PER DAY
     Route: 048
  3. LAMICTAL [Suspect]
     Indication: EPILEPSY
     Dosage: 20MG PER DAY
     Route: 048
     Dates: start: 20111130, end: 20111223
  4. PHENOBARBITAL TAB [Concomitant]
     Indication: EPILEPSY
     Dosage: 150MG PER DAY
     Route: 048
  5. LAMICTAL [Suspect]
     Dosage: 40MG PER DAY
     Route: 048
     Dates: start: 20111224, end: 20120110
  6. EPILEO PETIT MAL [Concomitant]
     Indication: EPILEPSY
     Dosage: 399MG PER DAY
     Route: 048

REACTIONS (2)
  - INSOMNIA [None]
  - PETIT MAL EPILEPSY [None]
